FAERS Safety Report 5885476-5 (Version None)
Quarter: 2008Q3

REPORT INFORMATION
  Report Type: 
  Country: None (occurrence: None)
  Receive Date: 20080916
  Receipt Date: 20080903
  Transmission Date: 20090109
  Serious: Yes (Hospitalization, Other)
  Sender: FDA-Public Use
  Company Number: US-ELI_LILLY_AND_COMPANY-US200809000694

PATIENT
  Sex: Female

DRUGS (4)
  1. CYMBALTA [Suspect]
     Indication: DEPRESSION
     Dosage: 60 MG, DAILY (1/D)
  2. CYMBALTA [Suspect]
     Dosage: 60 MG, 2/D
  3. OXYCODONE HCL [Concomitant]
  4. METHADONE HCL [Concomitant]

REACTIONS (3)
  - BLEEDING TIME ABNORMAL [None]
  - EMBOLISM [None]
  - PULMONARY EMBOLISM [None]
